FAERS Safety Report 24332800 (Version 3)
Quarter: 2024Q3

REPORT INFORMATION
  Report Type: Spontaneous
  Country: US (occurrence: US)
  Receive Date: 20240918
  Receipt Date: 20240925
  Transmission Date: 20241017
  Serious: No
  Sender: PFIZER
  Company Number: US-PFIZER INC-202400254876

PATIENT
  Age: 4 Year
  Sex: Female
  Weight: 13.61 kg

DRUGS (1)
  1. GENOTROPIN [Suspect]
     Active Substance: SOMATROPIN
     Indication: Low birth weight baby
     Dosage: 0.5 MG, DAILY (EVERY NIGHT)
     Route: 065

REACTIONS (3)
  - Device breakage [Unknown]
  - Wrong technique in device usage process [Unknown]
  - Drug dose omission by device [Unknown]

NARRATIVE: CASE EVENT DATE: 20240910
